FAERS Safety Report 9270575 (Version 1)
Quarter: 2013Q2

REPORT INFORMATION
  Report Type: Spontaneous
  Country: FR (occurrence: FR)
  Receive Date: 20130503
  Receipt Date: 20130503
  Transmission Date: 20140414
  Serious: Yes (Hospitalization)
  Sender: FDA-Public Use
  Company Number: FR-PFIZER INC-2013134023

PATIENT
  Age: 30 Year
  Sex: Female

DRUGS (8)
  1. ARACYTINE [Suspect]
     Indication: ACUTE LYMPHOCYTIC LEUKAEMIA
     Dosage: 40 MG ON D1, D8 AND D15
     Route: 037
     Dates: start: 20130313, end: 20130328
  2. VINCRISTINE SULFATE [Suspect]
     Indication: ACUTE LYMPHOCYTIC LEUKAEMIA
     Dosage: 2 MG/DAY ON D4 AND D11
     Route: 042
     Dates: start: 20130316, end: 20130323
  3. DOXORUBICIN TEVA [Suspect]
     Indication: ACUTE LYMPHOCYTIC LEUKAEMIA
     Dosage: 86.5 MG, 1X/DAY ON D4
     Route: 042
     Dates: start: 20130316, end: 20130316
  4. DEXAMETHASONE MYLAN [Suspect]
     Indication: ACUTE LYMPHOCYTIC LEUKAEMIA
     Dosage: 40 MG FROM D1 TO D4  AND FROM D11 TO 14
     Route: 042
     Dates: start: 20130313, end: 20130327
  5. GLIVEC [Suspect]
     Indication: ACUTE LYMPHOCYTIC LEUKAEMIA
     Dosage: 800 MG, 1X/DAY
     Route: 048
     Dates: start: 20130313, end: 20130327
  6. ENDOXAN [Suspect]
     Indication: ACUTE LYMPHOCYTIC LEUKAEMIA
     Dosage: 519 MG, 2X/DAY ON D1 AND D3
     Route: 042
     Dates: start: 20130313, end: 20130315
  7. METHOTREXATE TEVA [Suspect]
     Indication: ACUTE LYMPHOCYTIC LEUKAEMIA
     Dosage: 15 MG, ON D1, D8 AND D15
     Route: 037
     Dates: start: 20130313, end: 20130328
  8. METHYLPREDNISOLONE MYLAN [Suspect]
     Indication: ACUTE LYMPHOCYTIC LEUKAEMIA
     Dosage: 40 MG, ON  D1, D8 AND D15
     Route: 037
     Dates: start: 20130313, end: 20130328

REACTIONS (2)
  - Posterior reversible encephalopathy syndrome [Recovered/Resolved]
  - Convulsion [Recovered/Resolved]
